FAERS Safety Report 4441866-9 (Version None)
Quarter: 2004Q3

REPORT INFORMATION
  Report Type: 
  Country: None (occurrence: None)
  Receive Date: 20040901
  Receipt Date: 20040817
  Transmission Date: 20050211
  Serious: Yes (Hospitalization)
  Sender: FDA-Public Use
  Company Number: 237843

PATIENT
  Age: 40 Year
  Sex: Female
  Weight: 107 kg

DRUGS (14)
  1. NORDITROPIN [Suspect]
     Indication: GROWTH HORMONE DEFICIENCY
     Dosage: 0.25 IU, QD
     Dates: start: 20030101, end: 20040123
  2. GLUCOPHAGE ^UNS^ [Concomitant]
  3. LANSOPRAZOLE [Concomitant]
  4. LEVOTHYROX (LEVOTHYROXINE SODIM) [Concomitant]
  5. MINIRIN ^AVENTIS PHARMA^ (DESMOPRESSIN ACETATE) [Concomitant]
  6. HYDROCORTISONE [Concomitant]
  7. COLPRONE TAB [Concomitant]
  8. ESTRADERM [Concomitant]
  9. DALFON (DIOSMIN) [Concomitant]
  10. OMEPRAZOLE [Concomitant]
  11. LANSOYL (PARAFFIN, LIQUID) [Concomitant]
  12. ACTISKENAN (MORPHINE SULFATE) [Concomitant]
  13. GLUCOSE [Concomitant]
  14. INSULIN [Concomitant]

REACTIONS (10)
  - ANAEMIA [None]
  - CONTUSION [None]
  - HEAD INJURY [None]
  - MENINGIOMA [None]
  - PHLEBITIS [None]
  - POST PROCEDURAL COMPLICATION [None]
  - PYREXIA [None]
  - ROAD TRAFFIC ACCIDENT [None]
  - STAPHYLOCOCCAL BACTERAEMIA [None]
  - SUBARACHNOID HAEMORRHAGE [None]
